FAERS Safety Report 9264006 (Version 1)
Quarter: 2013Q2

REPORT INFORMATION
  Report Type: Spontaneous
  Country: BR (occurrence: BR)
  Receive Date: 20130430
  Receipt Date: 20130430
  Transmission Date: 20140414
  Serious: Yes (Hospitalization, Other)
  Sender: FDA-Public Use
  Company Number: BR-BRISTOL-MYERS SQUIBB COMPANY-18826644

PATIENT
  Age: 59 Year
  Sex: Female
  Weight: 79 kg

DRUGS (10)
  1. ONGLYZA TABS 5 MG [Suspect]
     Indication: DIABETES MELLITUS
     Dosage: INTERUPTED ON 19JAN13
     Route: 048
  2. MICARDIS [Concomitant]
     Indication: HYPERTENSION
     Dosage: 1 DF: 40/5MG
  3. ROSUVASTATIN CALCIUM [Concomitant]
  4. ASPIRIN [Concomitant]
     Indication: VENOUS OCCLUSION
  5. CLOPIDOGREL + ACETYLSALICYLIC ACID [Concomitant]
     Indication: VENOUS OCCLUSION
  6. GLIFAGE [Concomitant]
     Indication: DIABETES MELLITUS
  7. NPH INSULIN [Concomitant]
     Indication: DIABETES MELLITUS
  8. APIDRA [Concomitant]
     Indication: DIABETES MELLITUS
  9. VITAMIN D [Concomitant]
  10. PAROXETINE [Concomitant]

REACTIONS (3)
  - Venous occlusion [Recovering/Resolving]
  - Haematochezia [Unknown]
  - Back pain [Unknown]
